FAERS Safety Report 23880439 (Version 1)
Quarter: 2024Q2

REPORT INFORMATION
  Report Type: Spontaneous
  Country: US (occurrence: US)
  Receive Date: 20240521
  Receipt Date: 20240521
  Transmission Date: 20240716
  Serious: No
  Sender: FDA-Public Use
  Company Number: US-HORIZON THERAPEUTICS-HZN-2023-005094

PATIENT

DRUGS (2)
  1. RAYOS [Suspect]
     Active Substance: PREDNISONE
     Indication: Product used for unknown indication
     Dosage: UNKNOWN DOSE
     Route: 065
  2. RAYOS [Suspect]
     Active Substance: PREDNISONE
     Dosage: INCREASED DOSE
     Route: 065

REACTIONS (1)
  - Pain in extremity [Unknown]
